FAERS Safety Report 14019515 (Version 1)
Quarter: 2017Q3

REPORT INFORMATION
  Report Type: Spontaneous
  Country: GB (occurrence: GB)
  Receive Date: 20170928
  Receipt Date: 20170928
  Transmission Date: 20171128
  Serious: Yes (Other)
  Sender: FDA-Public Use
  Company Number: GB-AUROBINDO-AUR-APL-2017-40908

PATIENT
  Age: 41 Year
  Sex: Female
  Weight: 68.3 kg

DRUGS (3)
  1. METRONIDAZOLE. [Suspect]
     Active Substance: METRONIDAZOLE
     Indication: INFECTION
     Dosage: 200 MG, 3 TIMES A DAY
     Route: 048
     Dates: start: 20170902, end: 20170906
  2. COD LIVER OIL [Concomitant]
     Active Substance: COD LIVER OIL
     Indication: PRODUCT USED FOR UNKNOWN INDICATION
     Dosage: OCCASIONAL DOSE.
  3. PROBIOTIC                          /06395501/ [Concomitant]
     Active Substance: BIFIDOBACTERIUM ANIMALIS LACTIS
     Indication: PRODUCT USED FOR UNKNOWN INDICATION
     Dosage: VERY OCCASIONAL.

REACTIONS (4)
  - Anxiety [Not Recovered/Not Resolved]
  - Nightmare [Unknown]
  - Depressed mood [Unknown]
  - Poor quality sleep [Unknown]

NARRATIVE: CASE EVENT DATE: 20170904
